FAERS Safety Report 5349985-X (Version None)
Quarter: 2007Q2

REPORT INFORMATION
  Report Type: 
  Country: None (occurrence: None)
  Receive Date: 20070607
  Receipt Date: 20070601
  Transmission Date: 20071010
  Serious: Yes (Hospitalization)
  Sender: FDA-Public Use
  Company Number: IT-SHR-IT-2007-020361

PATIENT
  Age: 21 Year
  Sex: Female

DRUGS (1)
  1. YASMIN [Suspect]
     Indication: ORAL CONTRACEPTION
     Dosage: 1 TAB(S), 1X/DAY
     Route: 048
     Dates: start: 20030415, end: 20040201

REACTIONS (4)
  - CONSTIPATION [None]
  - GASTROINTESTINAL DISORDER [None]
  - PYREXIA [None]
  - WHITE BLOOD CELL COUNT INCREASED [None]
